FAERS Safety Report 7042504-1 (Version None)
Quarter: 2010Q4

REPORT INFORMATION
  Report Type: 
  Country: None (occurrence: None)
  Receive Date: 20101013
  Receipt Date: 20100120
  Transmission Date: 20110411
  Serious: No
  Sender: FDA-Public Use
  Company Number: US-ASTRAZENECA-2010SE02767

PATIENT
  Sex: Female

DRUGS (6)
  1. SYMBICORT [Suspect]
     Indication: ASTHMA
     Dosage: 640 BID
     Route: 055
     Dates: start: 20100119
  2. IPRATROPIUM BROMIDE [Concomitant]
  3. FORADIL [Concomitant]
  4. ASMANEX TWISTHALER [Concomitant]
  5. SINGULAIR [Concomitant]
  6. PREDNISONE [Concomitant]

REACTIONS (2)
  - MUSCLE TIGHTNESS [None]
  - OROPHARYNGEAL PAIN [None]
